FAERS Safety Report 5923637-7 (Version None)
Quarter: 2008Q4

REPORT INFORMATION
  Report Type: 
  Country: None (occurrence: None)
  Receive Date: 20081015
  Receipt Date: 20081003
  Transmission Date: 20090506
  Serious: Yes (Death)
  Sender: FDA-Public Use
  Company Number: APP200800950

PATIENT
  Sex: Male

DRUGS (3)
  1. METHOTREXATE [Suspect]
     Indication: PENIS CARCINOMA
  2. CISPLATIN [Suspect]
     Indication: PENIS CARCINOMA
     Dosage: 200 MG/M2, 15 MG
  3. BLEOMYCIN SULFATE [Suspect]
     Indication: PENIS CARCINOMA

REACTIONS (1)
  - BRAIN STEM INFARCTION [None]
